FAERS Safety Report 7846942-6 (Version None)
Quarter: 2011Q4

REPORT INFORMATION
  Report Type: 
  Country: None (occurrence: None)
  Receive Date: 20111025
  Receipt Date: 20111021
  Transmission Date: 20120403
  Serious: Yes (Life-Threatening)
  Sender: FDA-Public Use
  Company Number: JP-ASTRAZENECA-2011SE63136

PATIENT
  Age: 69 Year
  Sex: Male
  Weight: 60 kg

DRUGS (9)
  1. DIPRIVAN [Suspect]
     Indication: INDUCTION OF ANAESTHESIA
     Route: 042
     Dates: start: 20101001
  2. REMIFENTANIL HYDROCHLORIDE [Suspect]
     Indication: INDUCTION OF ANAESTHESIA
     Dosage: 0.3 MICRO-G/KG/MIN
     Route: 065
     Dates: start: 20101001
  3. REMIFENTANIL HYDROCHLORIDE [Suspect]
     Dosage: 0.2 MICRO-G/KG/MIN
     Route: 065
     Dates: start: 20101001
  4. REMIFENTANIL HYDROCHLORIDE [Suspect]
     Indication: MAINTENANCE OF ANAESTHESIA
     Dosage: 0.3 MICRO-G/KG/MIN
     Route: 065
     Dates: start: 20101001
  5. DIPRIVAN [Suspect]
     Dosage: 2.5 MICRO-G/ML
     Route: 042
     Dates: start: 20101001
  6. ROCURONIUM BROMIDE [Concomitant]
     Route: 065
  7. DIPRIVAN [Suspect]
     Indication: MAINTENANCE OF ANAESTHESIA
     Route: 042
     Dates: start: 20101001
  8. DIPRIVAN [Suspect]
     Dosage: 2.5 MICRO-G/ML
     Route: 042
     Dates: start: 20101001
  9. REMIFENTANIL HYDROCHLORIDE [Suspect]
     Dosage: 0.2 MICRO-G/KG/MIN
     Route: 065
     Dates: start: 20101001

REACTIONS (7)
  - PCO2 INCREASED [None]
  - PO2 INCREASED [None]
  - ARTERIOSPASM CORONARY [None]
  - VENTRICULAR FIBRILLATION [None]
  - BLOOD PRESSURE SYSTOLIC INCREASED [None]
  - BLOOD PH DECREASED [None]
  - PROCEDURAL COMPLICATION [None]
